FAERS Safety Report 20898067 (Version 2)
Quarter: 2022Q3

REPORT INFORMATION
  Report Type: Spontaneous
  Country: US (occurrence: US)
  Receive Date: 20220531
  Receipt Date: 20220908
  Transmission Date: 20221026
  Serious: Yes (Hospitalization, Other)
  Sender: FDA-Public Use
  Company Number: US-SA-SAC20220527000929

PATIENT
  Age: 60 Year
  Sex: Female

DRUGS (3)
  1. AUBAGIO [Suspect]
     Active Substance: TERIFLUNOMIDE
     Indication: Multiple sclerosis
     Dosage: 14 MG, QD
     Route: 048
     Dates: start: 20201130
  2. DEPAKOTE [Concomitant]
     Active Substance: DIVALPROEX SODIUM
  3. VRAYLAR [Concomitant]
     Active Substance: CARIPRAZINE

REACTIONS (8)
  - Seizure [Unknown]
  - Seizure [Unknown]
  - Tardive dyskinesia [Unknown]
  - Multiple sclerosis [Unknown]
  - Peripheral swelling [Unknown]
  - Condition aggravated [Unknown]
  - Emphysema [Unknown]
  - Back pain [Unknown]

NARRATIVE: CASE EVENT DATE: 20210301
